FAERS Safety Report 6753128-5 (Version None)
Quarter: 2010Q2

REPORT INFORMATION
  Report Type: 
  Country: None (occurrence: None)
  Receive Date: 20100603
  Receipt Date: 20100525
  Transmission Date: 20101027
  Serious: Yes (Life-Threatening, Hospitalization)
  Sender: FDA-Public Use
  Company Number: JP-PFIZER INC-2010066524

PATIENT
  Age: 42 Year
  Sex: Male
  Weight: 86.9 kg

DRUGS (9)
  1. SUNITINIB MALATE [Suspect]
     Indication: RENAL CELL CARCINOMA
     Dosage: 50 MG, 1X/DAY
     Route: 048
     Dates: start: 20090805
  2. NORVASC [Concomitant]
     Dosage: UNK
     Route: 048
  3. DIOVANE [Concomitant]
     Dosage: UNK
     Route: 048
     Dates: start: 20090814
  4. LOXONIN [Concomitant]
     Dosage: UNK
     Route: 048
  5. MUCOSTA [Concomitant]
     Dosage: UNK
     Route: 048
  6. KERATINAMIN [Concomitant]
     Dosage: UNK
     Route: 062
     Dates: start: 20090805
  7. OXYCODONE HCL [Concomitant]
     Dosage: UNK
     Route: 048
     Dates: start: 20090805
  8. LENDORMIN [Concomitant]
     Dosage: UNK
     Route: 048
     Dates: start: 20090805
  9. DEXAMETHASONE [Concomitant]
     Dosage: UNK
     Route: 062
     Dates: start: 20090806

REACTIONS (5)
  - BLOOD CREATININE INCREASED [None]
  - HYPONATRAEMIA [None]
  - PLATELET COUNT DECREASED [None]
  - SEPTIC SHOCK [None]
  - WHITE BLOOD CELL COUNT DECREASED [None]
